FAERS Safety Report 4588542-X (Version None)
Quarter: 2005Q1

REPORT INFORMATION
  Report Type: 
  Country: None (occurrence: None)
  Receive Date: 20050216
  Receipt Date: 20050216
  Transmission Date: 20050727
  Serious: Yes (Other)
  Sender: FDA-Public Use
  Company Number: None

PATIENT
  Age: 7 Year
  Sex: Male
  Weight: 29.4838 kg

DRUGS (1)
  1. METHYLPHENIDATE (REGULAR RELEASE) [Suspect]
     Indication: ATTENTION DEFICIT/HYPERACTIVITY DISORDER
     Dosage: 10 MG PO TID  (TITRATED UP TO 30MG/DAY)
     Route: 048
     Dates: start: 20041110

REACTIONS (5)
  - ABNORMAL BEHAVIOUR [None]
  - HALLUCINATION, VISUAL [None]
  - HOMICIDAL IDEATION [None]
  - PARANOIA [None]
  - SUICIDAL IDEATION [None]
